FAERS Safety Report 9311022 (Version 1)
Quarter: 2013Q2

REPORT INFORMATION
  Report Type: Spontaneous
  Country: US (occurrence: US)
  Receive Date: 20130528
  Receipt Date: 20130528
  Transmission Date: 20140414
  Serious: Yes (Other)
  Sender: FDA-Public Use
  Company Number: US-ELI_LILLY_AND_COMPANY-US201304005256

PATIENT
  Age: 13 Year
  Sex: Female
  Weight: 63.49 kg

DRUGS (3)
  1. STRATTERA [Suspect]
     Indication: ATTENTION DEFICIT/HYPERACTIVITY DISORDER
     Dosage: 25 MG, UNKNOWN
     Dates: start: 201212
  2. STRATTERA [Suspect]
     Dosage: 18 MG, EACH MORNING
     Route: 048
  3. STRATTERA [Suspect]
     Dosage: 10 MG, EACH MORNING
     Route: 048

REACTIONS (3)
  - Dysgraphia [Recovering/Resolving]
  - Somnolence [Recovering/Resolving]
  - Tremor [Recovering/Resolving]
